FAERS Safety Report 15743807 (Version 1)
Quarter: 2018Q4

REPORT INFORMATION
  Report Type: Spontaneous
  Country: US (occurrence: US)
  Receive Date: 20181219
  Receipt Date: 20181219
  Transmission Date: 20190205
  Serious: Yes (Other)
  Sender: FDA-Public Use
  Company Number: None

PATIENT
  Age: 13 Year
  Sex: Male
  Weight: 80 kg

DRUGS (1)
  1. OSELTAMIVIR [Suspect]
     Active Substance: OSELTAMIVIR
     Indication: INFLUENZA
     Dosage: ?          QUANTITY:10 ML;?
     Route: 048
     Dates: start: 20181219, end: 20181219

REACTIONS (6)
  - Mood altered [None]
  - Disorganised speech [None]
  - Fear [None]
  - Suicidal ideation [None]
  - Abnormal behaviour [None]
  - Vomiting [None]

NARRATIVE: CASE EVENT DATE: 20181219
